FAERS Safety Report 6472466-7 (Version None)
Quarter: 2009Q4

REPORT INFORMATION
  Report Type: 
  Country: None (occurrence: None)
  Receive Date: 20091203
  Receipt Date: 20091118
  Transmission Date: 20100525
  Serious: Yes (Hospitalization)
  Sender: FDA-Public Use
  Company Number: JP-GILEAD-2007-0012527

PATIENT
  Age: 57 Year
  Sex: Female
  Weight: 146 kg

DRUGS (12)
  1. HEPSERA [Suspect]
     Indication: HEPATITIS B
     Route: 048
     Dates: start: 20070621, end: 20080111
  2. HEPSERA [Suspect]
     Route: 048
     Dates: start: 20051213, end: 20070620
  3. ZEFIX [Concomitant]
     Route: 048
  4. GASTER [Concomitant]
     Indication: GASTRITIS
     Route: 048
  5. MUCOSTA [Concomitant]
     Indication: GASTRITIS
     Route: 048
  6. PORTALAK [Concomitant]
     Indication: HEPATIC CIRRHOSIS
     Route: 048
  7. LIVACT [Concomitant]
     Indication: HEPATIC CIRRHOSIS
     Route: 048
  8. URSO 250 [Concomitant]
     Indication: HEPATIC CIRRHOSIS
     Route: 048
  9. ALFAROL [Concomitant]
     Indication: OSTEOPOROSIS
     Route: 048
  10. BENET [Concomitant]
     Indication: OSTEOPOROSIS
     Route: 048
     Dates: end: 20070612
  11. MAGMITT [Concomitant]
     Indication: CONSTIPATION
     Route: 048
     Dates: end: 20070605
  12. SENNOSIDES [Concomitant]
     Indication: CONSTIPATION
     Route: 048

REACTIONS (2)
  - FANCONI SYNDROME ACQUIRED [None]
  - OSTEOMALACIA [None]
